FAERS Safety Report 7166815-4 (Version None)
Quarter: 2010Q4

REPORT INFORMATION
  Report Type: 
  Country: None (occurrence: None)
  Receive Date: 20101216
  Receipt Date: 20101209
  Transmission Date: 20110411
  Serious: Yes (Other)
  Sender: FDA-Public Use
  Company Number: US-AMGEN-USASP2010006037

PATIENT

DRUGS (4)
  1. ENBREL [Suspect]
     Indication: RHEUMATOID ARTHRITIS
     Dosage: 25 MG, 2 TIMES/WK
     Dates: start: 19990101
  2. LEFLUNOMIDE [Concomitant]
     Dates: start: 19980101
  3. SIMVASTATIN [Concomitant]
  4. PREVACID [Concomitant]

REACTIONS (5)
  - BURSITIS INFECTIVE [None]
  - IMPAIRED HEALING [None]
  - INJECTION SITE PAIN [None]
  - NODULE [None]
  - NODULE ON EXTREMITY [None]
